FAERS Safety Report 19348166 (Version 2)
Quarter: 2021Q4

REPORT INFORMATION
  Report Type: Spontaneous
  Country: US (occurrence: US)
  Receive Date: 20210531
  Receipt Date: 20211227
  Transmission Date: 20220303
  Serious: No
  Sender: FDA-Public Use
  Company Number: US-PURDUE-USA-2020-0190098

PATIENT
  Age: 41 Year
  Sex: Male
  Weight: 106.58 kg

DRUGS (1)
  1. OXYCONTIN [Suspect]
     Active Substance: OXYCODONE HYDROCHLORIDE
     Indication: Osteoarthritis
     Dosage: UNKNOWN
     Route: 048
     Dates: start: 20110412, end: 20130829

REACTIONS (2)
  - Cognitive disorder [Recovered/Resolved]
  - Confusional state [Recovered/Resolved]

NARRATIVE: CASE EVENT DATE: 20110412
